FAERS Safety Report 25283601 (Version 3)
Quarter: 2025Q3

REPORT INFORMATION
  Report Type: Spontaneous
  Country: US (occurrence: US)
  Receive Date: 20250508
  Receipt Date: 20250805
  Transmission Date: 20251021
  Serious: No
  Sender: NOVARTIS
  Company Number: US-002147023-NVSC2025US073045

PATIENT
  Sex: Female

DRUGS (1)
  1. KISQALI [Suspect]
     Active Substance: RIBOCICLIB SUCCINATE
     Indication: Hormone receptor positive HER2 negative breast cancer
     Dosage: 200 MG, TID
     Route: 048
     Dates: start: 20250411

REACTIONS (4)
  - Fatigue [Unknown]
  - Musculoskeletal stiffness [Unknown]
  - Heart rate increased [Unknown]
  - Hot flush [Unknown]
